FAERS Safety Report 5070769-4 (Version None)
Quarter: 2006Q3

REPORT INFORMATION
  Report Type: 
  Country: None (occurrence: None)
  Receive Date: 20060804
  Receipt Date: 20051118
  Transmission Date: 20061208
  Serious: Yes (Life-Threatening, Hospitalization)
  Sender: FDA-Public Use
  Company Number: CA-BAYER-200514009GDS

PATIENT
  Age: 39 Year
  Sex: Female

DRUGS (6)
  1. AVELOX [Suspect]
     Indication: INFECTION
     Dosage: TOTAL DAILY DOSE: 400 MG  UNIT DOSE: 400 MG
     Route: 048
     Dates: start: 20050622, end: 20050622
  2. ATIVAN SUBL [Concomitant]
     Indication: DRUG USE FOR UNKNOWN INDICATION
     Dosage: TOTAL DAILY DOSE: 1 MG  UNIT DOSE: 1 MG
     Route: 060
  3. CLONAZEPAM [Concomitant]
     Indication: DRUG USE FOR UNKNOWN INDICATION
     Dosage: TOTAL DAILY DOSE: 4 MG  UNIT DOSE: 0.5 MG
     Route: 065
  4. EFFEXOR XR [Concomitant]
     Indication: DRUG USE FOR UNKNOWN INDICATION
     Dosage: TOTAL DAILY DOSE: 75 MG  UNIT DOSE: 37.5 MG
     Route: 065
  5. SINGULAIR [Concomitant]
     Indication: DRUG USE FOR UNKNOWN INDICATION
     Dosage: TOTAL DAILY DOSE: 10 MG  UNIT DOSE: 10 MG
     Route: 065
  6. SYMBICORT TURBUHALER [Concomitant]
     Indication: DRUG USE FOR UNKNOWN INDICATION
     Dosage: TOTAL DAILY DOSE: 4 PUFF
     Route: 065

REACTIONS (6)
  - DYSPNOEA [None]
  - ELECTROCARDIOGRAM QT PROLONGED [None]
  - HYPOTENSION [None]
  - PARALYSIS [None]
  - TACHYCARDIA [None]
  - VOMITING [None]
